FAERS Safety Report 6773272-6 (Version None)
Quarter: 2010Q2

REPORT INFORMATION
  Report Type: 
  Country: None (occurrence: None)
  Receive Date: 20100616
  Receipt Date: 20100326
  Transmission Date: 20101027
  Serious: Yes (Hospitalization)
  Sender: FDA-Public Use
  Company Number: US-ABBOTT-10P-163-0635112-00

PATIENT
  Sex: Male
  Weight: 68.554 kg

DRUGS (11)
  1. TRILIPIX [Suspect]
     Indication: DYSLIPIDAEMIA
     Route: 048
     Dates: start: 20091204, end: 20100219
  2. LISINOPRIL [Concomitant]
     Indication: HYPERTENSION
  3. LOVAZA [Concomitant]
     Indication: SUPPLEMENTATION THERAPY
  4. ASPIRIN [Concomitant]
     Indication: CORONARY ARTERY DISEASE
  5. NORVASC [Concomitant]
     Indication: HYPERTENSION
  6. SYNTHROID [Concomitant]
     Indication: DRUG USE FOR UNKNOWN INDICATION
  7. NITROGLYCERIN [Concomitant]
     Indication: DRUG USE FOR UNKNOWN INDICATION
     Route: 062
  8. PLAVIX [Concomitant]
     Indication: PERIPHERAL VASCULAR DISORDER
     Route: 048
  9. CATAPRES [Concomitant]
     Indication: HYPERTENSION
     Route: 048
  10. AVAPRO [Concomitant]
     Indication: HYPERTENSION
  11. HYDRALAZINE HCL [Concomitant]
     Indication: HYPERTENSION
     Route: 048

REACTIONS (4)
  - BACK PAIN [None]
  - PAIN IN EXTREMITY [None]
  - RENAL FAILURE [None]
  - RHABDOMYOLYSIS [None]
